FAERS Safety Report 9032384 (Version 2)
Quarter: 2013Q1

REPORT INFORMATION
  Report Type: Spontaneous
  Country: JP (occurrence: None)
  Receive Date: 20130108
  Receipt Date: 20130130
  Transmission Date: 20140127
  Serious: Yes (Other)
  Sender: FDA-Public Use
  Company Number: 2008JP003808

PATIENT
  Age: 46 Year
  Sex: Female
  Weight: 54.3 kg

DRUGS (11)
  1. PROGRAF (TACROLIMUS) CAPSULE [Suspect]
     Indication: LUPUS NEPHRITIS
     Route: 048
     Dates: start: 20071214
  2. PREDONINE [Suspect]
     Indication: LUPUS NEPHRITIS
     Route: 048
     Dates: end: 20071214
  3. DORNER [Concomitant]
  4. LASIX (FUROSEMIDE) [Concomitant]
  5. BONALON (ALENDRONATE SODIUM) [Concomitant]
  6. COVERSYL (PERINDOPRIL ERBUMINE) [Concomitant]
  7. NU-LOTAN (LOSARTAN POTASSIUM) [Concomitant]
  8. ZYLORIC (ALLOPURINOL) [Concomitant]
  9. VALTREX (VALACICLOVIR HYDROCHLORIDE) [Concomitant]
  10. CLARITH (CLARITHROMYCIN) [Concomitant]
  11. TAKEPRON (LANSOPRAZOLE) CAPSULE [Concomitant]

REACTIONS (12)
  - Herpes zoster [None]
  - Chronic sinusitis [None]
  - Blood urea increased [None]
  - Blood urea increased [None]
  - Gastrooesophageal reflux disease [None]
  - Rib fracture [None]
  - Hyperuricaemia [None]
  - Renal disorder [None]
  - Gastrooesophageal reflux disease [None]
  - Concomitant disease aggravated [None]
  - Infection [None]
  - Osteoporosis [None]
